FAERS Safety Report 4839148-6 (Version None)
Quarter: 2005Q4

REPORT INFORMATION
  Report Type: 
  Country: None (occurrence: None)
  Receive Date: 20051031
  Receipt Date: 20050906
  Transmission Date: 20060501
  Serious: No
  Sender: FDA-Public Use
  Company Number: 200516634US

PATIENT
  Sex: Female

DRUGS (7)
  1. KETEK [Suspect]
     Dosage: PO
     Route: 048
     Dates: end: 20050831
  2. LIOTHYRONINE SODIUM (CYTOMEL) [Concomitant]
  3. CALCIUM CARBONATE (TUMS) [Concomitant]
  4. CALCITRIOL [Concomitant]
  5. METOPROLOL TARTRATE (LOPRESSOR) [Concomitant]
  6. ASPIRIN [Concomitant]
  7. FOSAMAX [Concomitant]

REACTIONS (2)
  - DIZZINESS [None]
  - TONGUE DISCOLOURATION [None]
